FAERS Safety Report 8152606-4 (Version None)
Quarter: 2012Q1

REPORT INFORMATION
  Report Type: 
  Country: None (occurrence: None)
  Receive Date: 20120221
  Receipt Date: 20120208
  Transmission Date: 20120608
  Serious: Yes (Congenital Anomaly, Other)
  Sender: FDA-Public Use
  Company Number: DE-TEVA-321694GER

PATIENT
  Age: 0 Year
  Sex: Female
  Weight: 1.71 kg

DRUGS (4)
  1. FOLSAURE RATIOPHARM 5 MG [Concomitant]
     Route: 064
  2. LAMOTRIGINE [Suspect]
     Route: 064
  3. FRISIUM [Suspect]
     Route: 064
  4. THYROXIN [Concomitant]
     Route: 064

REACTIONS (6)
  - VENTRICULAR SEPTAL DEFECT [None]
  - CONGENITAL CHOROID PLEXUS CYST [None]
  - ATRIAL SEPTAL DEFECT [None]
  - CARDIAC ANEURYSM [None]
  - FEEDING DISORDER NEONATAL [None]
  - MYOCLONUS [None]
